FAERS Safety Report 20918463 (Version 1)
Quarter: 2022Q2

REPORT INFORMATION
  Report Type: Spontaneous
  Country: PL (occurrence: None)
  Receive Date: 20220606
  Receipt Date: 20220606
  Transmission Date: 20220721
  Serious: Yes (Hospitalization, Other)
  Sender: FDA-Public Use
  Company Number: PL-MICRO LABS LIMITED-ML2022-02378

PATIENT
  Age: 70 Year
  Sex: Male

DRUGS (13)
  1. CELECOXIB [Suspect]
     Active Substance: CELECOXIB
  2. DICLOFENAC [Suspect]
     Active Substance: DICLOFENAC
     Indication: Cauda equina syndrome
     Dosage: IN THE FORM OF TWO DIFFERENT PREPARATIONS
  3. DULOXETINE [Suspect]
     Active Substance: DULOXETINE
     Indication: Cauda equina syndrome
  4. ASPIRIN [Suspect]
     Active Substance: ASPIRIN
     Indication: Cauda equina syndrome
  5. KETOPROFEN [Suspect]
     Active Substance: KETOPROFEN
     Indication: Cauda equina syndrome
  6. NIMESULIDE [Suspect]
     Active Substance: NIMESULIDE
     Indication: Cauda equina syndrome
  7. INDAPAMIDE [Suspect]
     Active Substance: INDAPAMIDE
  8. LERCANIDIPINE [Suspect]
     Active Substance: LERCANIDIPINE
  9. PANTOPRAZOLE [Concomitant]
     Active Substance: PANTOPRAZOLE
     Dosage: UNDER FASTING CONDITIONS
  10. NEBIVOLOL. [Concomitant]
  11. VALSARTAN [Concomitant]
     Active Substance: VALSARTAN
  12. ATORVASTATIN. [Concomitant]
  13. GABAPENTIN. [Concomitant]

REACTIONS (3)
  - Hyponatraemia [Recovered/Resolved]
  - Urinary retention [Unknown]
  - Drug interaction [Unknown]
